FAERS Safety Report 25499426 (Version 2)
Quarter: 2025Q3

REPORT INFORMATION
  Report Type: Spontaneous
  Country: EU (occurrence: EU)
  Receive Date: 20250701
  Receipt Date: 20250813
  Transmission Date: 20251021
  Serious: Yes (Hospitalization)
  Sender: MERCK SHARP & DOHME LLC
  Company Number: None

PATIENT
  Age: 38 Year
  Sex: Male
  Weight: 82.2 kg

DRUGS (4)
  1. CASPOFUNGIN ACETATE [Suspect]
     Active Substance: CASPOFUNGIN ACETATE
     Indication: Fungaemia
     Route: 042
     Dates: start: 20250606, end: 20250616
  2. AMOXICILLIN SODIUM [Suspect]
     Active Substance: AMOXICILLIN SODIUM
     Indication: Infection
     Route: 048
     Dates: start: 20250517, end: 20250603
  3. PENICILLIN V [Suspect]
     Active Substance: PENICILLIN V
     Indication: Infection
     Dosage: DOSAGE: 2000000 UIU
     Route: 048
     Dates: start: 20250516, end: 20250603
  4. PANTOPRAZOLE SODIUM [Suspect]
     Active Substance: PANTOPRAZOLE SODIUM
     Indication: Impaired gastric emptying
     Route: 048
     Dates: start: 20250606, end: 20250609

REACTIONS (1)
  - Eosinophilia [Not Recovered/Not Resolved]

NARRATIVE: CASE EVENT DATE: 20250603
